FAERS Safety Report 25821160 (Version 1)
Quarter: 2025Q3

REPORT INFORMATION
  Report Type: Spontaneous
  Country: US (occurrence: US)
  Receive Date: 20250919
  Receipt Date: 20250919
  Transmission Date: 20251020
  Serious: Yes (Life-Threatening, Hospitalization, Other)
  Sender: Onesource Specialty Pharma
  Company Number: US-STRIDES ARCOLAB LIMITED-2025OS000711

PATIENT
  Age: 56 Year
  Sex: Male

DRUGS (9)
  1. AMPICILLIN [Suspect]
     Active Substance: AMPICILLIN
     Indication: Pneumonia bacterial
     Route: 065
  2. AMPICILLIN [Suspect]
     Active Substance: AMPICILLIN
     Indication: Encephalitis brain stem
  3. AMPICILLIN [Suspect]
     Active Substance: AMPICILLIN
     Indication: Listeriosis
  4. PIPERACILLIN SODIUM\TAZOBACTAM SODIUM [Suspect]
     Active Substance: PIPERACILLIN SODIUM\TAZOBACTAM SODIUM
     Indication: Pneumonia bacterial
     Route: 065
  5. PIPERACILLIN SODIUM\TAZOBACTAM SODIUM [Suspect]
     Active Substance: PIPERACILLIN SODIUM\TAZOBACTAM SODIUM
     Indication: Encephalitis brain stem
  6. PIPERACILLIN SODIUM\TAZOBACTAM SODIUM [Suspect]
     Active Substance: PIPERACILLIN SODIUM\TAZOBACTAM SODIUM
     Indication: Listeriosis
  7. VANCOMYCIN [Suspect]
     Active Substance: VANCOMYCIN
     Indication: Pneumonia bacterial
     Route: 065
  8. VANCOMYCIN [Suspect]
     Active Substance: VANCOMYCIN
     Indication: Encephalitis brain stem
  9. VANCOMYCIN [Suspect]
     Active Substance: VANCOMYCIN
     Indication: Listeriosis

REACTIONS (2)
  - Condition aggravated [None]
  - Drug ineffective [Unknown]
